FAERS Safety Report 17880954 (Version 1)
Quarter: 2020Q2

REPORT INFORMATION
  Report Type: Spontaneous
  Country: CA (occurrence: CA)
  Receive Date: 20200610
  Receipt Date: 20200610
  Transmission Date: 20200714
  Serious: Yes (Other)
  Sender: FDA-Public Use
  Company Number: CA-LEO PHARMA-329928

PATIENT
  Age: 56 Year
  Sex: Female
  Weight: 58 kg

DRUGS (1)
  1. PICATO [Suspect]
     Active Substance: INGENOL MEBUTATE
     Indication: ACTINIC KERATOSIS
     Route: 061

REACTIONS (6)
  - Eye pain [Recovering/Resolving]
  - Application site scab [Recovering/Resolving]
  - Eye swelling [Recovering/Resolving]
  - Application site paraesthesia [Recovering/Resolving]
  - Swelling face [Recovering/Resolving]
  - Visual impairment [Recovering/Resolving]
